FAERS Safety Report 13895606 (Version 1)
Quarter: 2017Q3

REPORT INFORMATION
  Report Type: Spontaneous
  Country: US (occurrence: US)
  Receive Date: 20170820
  Receipt Date: 20170820
  Transmission Date: 20171127
  Serious: Yes (Disabling)
  Sender: FDA-Public Use
  Company Number: None

PATIENT
  Sex: Male
  Weight: 81 kg

DRUGS (4)
  1. CLONAZEPAM. [Suspect]
     Active Substance: CLONAZEPAM
     Indication: CORONARY ARTERY DISEASE
     Dosage: ?          QUANTITY:1 TABLET(S);?3 TIMES A DAY ORAL
     Route: 048
     Dates: start: 20090815, end: 20130315
  2. ZOLOFT [Concomitant]
     Active Substance: SERTRALINE HYDROCHLORIDE
  3. MULTIVITAMIN [Concomitant]
     Active Substance: VITAMINS
  4. MAGNESIUM [Concomitant]
     Active Substance: MAGNESIUM

REACTIONS (11)
  - Dizziness [None]
  - Insomnia [None]
  - Panic reaction [None]
  - Sleep terror [None]
  - Neurological symptom [None]
  - Loss of personal independence in daily activities [None]
  - Hallucination [None]
  - Depersonalisation/derealisation disorder [None]
  - Derealisation [None]
  - Cognitive disorder [None]
  - Tinnitus [None]

NARRATIVE: CASE EVENT DATE: 20130315
